FAERS Safety Report 17073678 (Version 1)
Quarter: 2019Q4

REPORT INFORMATION
  Report Type: Report from Study
  Country: None (occurrence: PR)
  Receive Date: 20191126
  Receipt Date: 20191126
  Transmission Date: 20200122
  Serious: Yes (Hospitalization)
  Sender: FDA-Public Use
  Company Number: PR-ABBVIE-19P-163-3168662-00

PATIENT
  Sex: Female

DRUGS (1)
  1. IMBRUVICA [Suspect]
     Active Substance: IBRUTINIB
     Indication: MANTLE CELL LYMPHOMA
     Route: 048
     Dates: start: 20140501

REACTIONS (5)
  - Blood pressure abnormal [Unknown]
  - Memory impairment [Unknown]
  - Thrombosis [Unknown]
  - Thyroid disorder [Unknown]
  - Collagen disorder [Unknown]
